FAERS Safety Report 6274965-X (Version None)
Quarter: 2009Q3

REPORT INFORMATION
  Report Type: 
  Country: None (occurrence: None)
  Receive Date: 20090721
  Receipt Date: 20090716
  Transmission Date: 20100115
  Serious: Yes (Other)
  Sender: FDA-Public Use
  Company Number: JP-ALLERGAN-0909639US

PATIENT
  Age: 4 Year
  Sex: Male

DRUGS (5)
  1. ALESION SYRUP [Suspect]
     Indication: RHINITIS ALLERGIC
     Dosage: 1 %, UNKNOWN
     Route: 048
     Dates: start: 20090623, end: 20090630
  2. SINGULAIR [Concomitant]
     Indication: ASTHMA
     Dosage: UNK, UNKNOWN
     Route: 048
     Dates: end: 20090630
  3. MEPTIN [Concomitant]
     Indication: ASTHMA
     Dosage: UNK, UNKNOWN
     Route: 048
  4. MUCODYNE [Concomitant]
     Indication: PRODUCTIVE COUGH
     Dosage: UNK, UNKNOWN
     Route: 048
  5. ASVERIN [Concomitant]
     Indication: COUGH
     Dosage: UNK, UNKNOWN
     Route: 048
     Dates: end: 20090630

REACTIONS (2)
  - PYREXIA [None]
  - WHITE BLOOD CELL COUNT DECREASED [None]
